FAERS Safety Report 4524403-X (Version None)
Quarter: 2004Q4

REPORT INFORMATION
  Report Type: 
  Country: None (occurrence: None)
  Receive Date: 20041123
  Receipt Date: 20040401
  Transmission Date: 20050328
  Serious: Yes (Hospitalization)
  Sender: FDA-Public Use
  Company Number: US-JNJFOC-20040406534

PATIENT
  Age: 49 Year
  Sex: Female
  Weight: 76.6579 kg

DRUGS (3)
  1. PROPULSID [Suspect]
     Indication: DRUG USE FOR UNKNOWN INDICATION
     Dosage: 10 MG, 4 IN 1 DAY
     Dates: start: 19980225
  2. NORVASC [Concomitant]
  3. ATIVAN [Concomitant]

REACTIONS (2)
  - ARRHYTHMIA [None]
  - CHEST PAIN [None]
